FAERS Safety Report 7556753-7 (Version None)
Quarter: 2011Q2

REPORT INFORMATION
  Report Type: 
  Country: None (occurrence: None)
  Receive Date: 20110616
  Receipt Date: 20110616
  Transmission Date: 20111010
  Serious: No
  Sender: FDA-Public Use
  Company Number: None

PATIENT
  Sex: Female

DRUGS (1)
  1. GILENYA [Suspect]
     Dosage: .5 MG PO TAKE 1 CAPSULE BY MOUTH DAILY
     Route: 048

REACTIONS (5)
  - FORMICATION [None]
  - INFLUENZA LIKE ILLNESS [None]
  - DIARRHOEA [None]
  - COUGH [None]
  - PRURITUS [None]
